FAERS Safety Report 24116078 (Version 1)
Quarter: 2024Q3

REPORT INFORMATION
  Report Type: Spontaneous
  Country: EU (occurrence: EU)
  Receive Date: 20240722
  Receipt Date: 20240722
  Transmission Date: 20241017
  Serious: Yes (Life-Threatening, Hospitalization)
  Sender: OCTAPHARMA
  Company Number: SI-OCTA-NGAM02424

PATIENT
  Sex: Female
  Weight: 85 kg

DRUGS (1)
  1. PANZYGA [Suspect]
     Active Substance: HUMAN IMMUNOGLOBULIN G
     Indication: Hypogammaglobulinaemia
     Route: 042
     Dates: start: 20240617, end: 20240617

REACTIONS (8)
  - Transfusion-related acute lung injury [Recovering/Resolving]
  - Blood pressure increased [Unknown]
  - Tachycardia [Unknown]
  - Chills [Unknown]
  - Pulmonary oedema [Unknown]
  - Hypoxia [Unknown]
  - Pyrexia [Unknown]
  - Cough [Unknown]

NARRATIVE: CASE EVENT DATE: 20240617
